FAERS Safety Report 9415563 (Version 1)
Quarter: 2013Q3

REPORT INFORMATION
  Report Type: Spontaneous
  Country: US (occurrence: US)
  Receive Date: 20130723
  Receipt Date: 20130723
  Transmission Date: 20140515
  Serious: No
  Sender: FDA-Public Use
  Company Number: US-009507513-1307USA012772

PATIENT
  Sex: Female

DRUGS (1)
  1. COPPERTONE KIDS LOTION SPF 70+ [Suspect]
     Indication: PRODUCT USED FOR UNKNOWN INDICATION
     Dosage: UNK, UNKNOWN
     Route: 061

REACTIONS (4)
  - Eye irritation [Recovered/Resolved]
  - Abnormal sensation in eye [Not Recovered/Not Resolved]
  - Hyperhidrosis [Unknown]
  - Accidental exposure to product [Unknown]
